FAERS Safety Report 6162086-6 (Version None)
Quarter: 2009Q2

REPORT INFORMATION
  Report Type: 
  Country: None (occurrence: None)
  Receive Date: 20090417
  Receipt Date: 20090213
  Transmission Date: 20091009
  Serious: Yes (Death, Hospitalization)
  Sender: FDA-Public Use
  Company Number: AMAN20080016

PATIENT
  Age: 53 Year
  Sex: Male

DRUGS (4)
  1. MANTADIX (AMANTADINE) [Suspect]
     Indication: EXTRAPYRAMIDAL DISORDER
     Dosage: 100 MG, 8 TIMES DAILY, ORAL
     Route: 048
     Dates: start: 20040101, end: 20080919
  2. PLAVIX [Suspect]
     Indication: PROPHYLAXIS
     Dosage: 75 MG, 1 TABLET DAILY, ORAL
     Route: 048
     Dates: start: 20040101, end: 20080927
  3. ATENOLOL [Suspect]
     Indication: HYPERTENSION
     Dosage: 50 MG, BID, ORAL
     Route: 048
     Dates: start: 20030101, end: 20081001
  4. COMTAN [Suspect]
     Indication: EXTRAPYRAMIDAL DISORDER
     Dosage: 200 MG, 8 TABLETS DAILY, ORAL
     Route: 048
     Dates: start: 20040101, end: 20080919

REACTIONS (7)
  - DEHYDRATION [None]
  - DISEASE PROGRESSION [None]
  - NEUROLOGICAL DECOMPENSATION [None]
  - PARKINSON'S DISEASE [None]
  - PYREXIA [None]
  - VASCULITIS [None]
  - VASCULITIS CEREBRAL [None]
